FAERS Safety Report 19548611 (Version 1)
Quarter: 2021Q3

REPORT INFORMATION
  Report Type: Spontaneous
  Country: US (occurrence: US)
  Receive Date: 20210714
  Receipt Date: 20210714
  Transmission Date: 20211014
  Serious: Yes (Death)
  Sender: FDA-Public Use
  Company Number: None

PATIENT
  Age: 72 Year
  Sex: Male

DRUGS (2)
  1. TACROLIMUS  1MG [Suspect]
     Active Substance: TACROLIMUS
     Dosage: ?          OTHER FREQUENCY:6 C BID;?
     Route: 048
     Dates: start: 201904
  2. TACROLIMUS 0.5MG [Suspect]
     Active Substance: TACROLIMUS
     Indication: LIVER TRANSPLANT
     Dosage: ?          OTHER FREQUENCY:1 C BID;?
     Route: 048
     Dates: start: 201904

REACTIONS (1)
  - Transplant rejection [None]
